FAERS Safety Report 8321516-1 (Version None)
Quarter: 2012Q2

REPORT INFORMATION
  Report Type: 
  Country: None (occurrence: None)
  Receive Date: 20120430
  Receipt Date: 20120430
  Transmission Date: 20120825
  Serious: Yes (Other)
  Sender: FDA-Public Use
  Company Number: None

PATIENT
  Age: 57 Year
  Sex: Female
  Weight: 149.68 kg

DRUGS (2)
  1. SAVELLA [Suspect]
     Indication: FIBROMYALGIA
     Dosage: GRADUAL STEP UP
     Route: 048
     Dates: start: 20120414
  2. SAVELLA [Concomitant]

REACTIONS (3)
  - VOMITING [None]
  - ABDOMINAL PAIN UPPER [None]
  - HEADACHE [None]
